FAERS Safety Report 7361618-X (Version None)
Quarter: 2011Q1

REPORT INFORMATION
  Report Type: 
  Country: None (occurrence: None)
  Receive Date: 20110318
  Receipt Date: 20110308
  Transmission Date: 20110831
  Serious: Yes (Other)
  Sender: FDA-Public Use
  Company Number: US-JNJFOC-20110305469

PATIENT
  Sex: Male

DRUGS (6)
  1. UNKNOWN MEDICATION [Concomitant]
     Indication: PRODUCT USED FOR UNKNOWN INDICATION
     Route: 065
  2. SINGULAIR [Concomitant]
     Indication: PRODUCT USED FOR UNKNOWN INDICATION
     Route: 065
  3. CONCERTA [Suspect]
     Indication: AFFECTIVE DISORDER
     Route: 048
  4. RISPERDAL [Suspect]
     Indication: AFFECTIVE DISORDER
     Dosage: 1 IN AM
     Route: 048
  5. RISPERDAL [Suspect]
     Indication: ATTENTION DEFICIT/HYPERACTIVITY DISORDER
     Dosage: 1 IN AM
     Route: 048
  6. CONCERTA [Suspect]
     Indication: ATTENTION DEFICIT/HYPERACTIVITY DISORDER
     Route: 048

REACTIONS (7)
  - AGGRESSION [None]
  - CONVULSION [None]
  - DISTURBANCE IN SOCIAL BEHAVIOUR [None]
  - LOSS OF CONSCIOUSNESS [None]
  - DYSARTHRIA [None]
  - OFF LABEL USE [None]
  - ABNORMAL BEHAVIOUR [None]
